FAERS Safety Report 4427242-3 (Version None)
Quarter: 2004Q3

REPORT INFORMATION
  Report Type: 
  Country: None (occurrence: None)
  Receive Date: 20040813
  Receipt Date: 20040813
  Transmission Date: 20050211
  Serious: Yes (Hospitalization)
  Sender: FDA-Public Use
  Company Number: None

PATIENT
  Age: 47 Year
  Sex: Male
  Weight: 115 kg

DRUGS (5)
  1. GAMMAGARD [Suspect]
     Indication: NEUROPATHY
     Dosage: 110 GRAMS MONTHLY INTRAVENOUS
     Route: 042
     Dates: start: 20041201, end: 20040102
  2. GAMMAGARD [Suspect]
     Indication: NEUROPATHY
     Dosage: 5 GRAMS MONTHLY INTRAVENOUS
     Route: 042
     Dates: start: 20031201, end: 20040102
  3. GABAPENTIN [Concomitant]
  4. NORTRIPTYLINE HCL [Concomitant]
  5. IBUPROFEN [Concomitant]

REACTIONS (5)
  - INFUSION RELATED REACTION [None]
  - PRURITUS [None]
  - SKIN ULCER [None]
  - SPEECH DISORDER [None]
  - TREMOR [None]
